FAERS Safety Report 5567063-1 (Version None)
Quarter: 2007Q4

REPORT INFORMATION
  Report Type: 
  Country: None (occurrence: None)
  Receive Date: 20071219
  Receipt Date: 20060403
  Transmission Date: 20080405
  Serious: Yes (Death, Hospitalization)
  Sender: FDA-Public Use
  Company Number: ZA-ROCHE-443179

PATIENT
  Age: 55 Year
  Sex: Female
  Weight: 76.5 kg

DRUGS (13)
  1. XELODA [Suspect]
     Route: 048
     Dates: start: 20060126, end: 20060208
  2. NAVELBINE [Concomitant]
     Dosage: DOSE GIVEN ON DAYS 1 AND 8
     Route: 048
     Dates: start: 20060126, end: 20060202
  3. DIGOXIN [Concomitant]
     Indication: CARDIOMYOPATHY
     Route: 048
  4. TRITACE [Concomitant]
     Indication: CARDIOMYOPATHY
     Dosage: DOSE GIVEN IN THE MORNING
  5. WARFARIN SODIUM [Concomitant]
     Indication: CARDIOMYOPATHY
     Dosage: GIVEN ACCORDING TO INR
  6. 1 CONCOMITANT DRUG [Concomitant]
     Indication: CARDIOMYOPATHY
     Dosage: DRUG NAME REPORTED AS ^BILOCOR^
     Route: 048
  7. NEURONTIN [Concomitant]
     Indication: CARDIOMYOPATHY
     Route: 048
  8. THIAMINE [Concomitant]
     Indication: CARDIOMYOPATHY
  9. FOLIC ACID [Concomitant]
     Indication: CARDIOMYOPATHY
  10. AMILORETIC [Concomitant]
     Indication: CARDIOMYOPATHY
  11. 1 CONCOMITANT DRUG [Concomitant]
     Indication: HYPERCHOLESTEROLAEMIA
     Dosage: DRUG NAME REPORTED AS ^PRANALIP^
  12. GLUCOPHAGE [Concomitant]
     Indication: DIABETES MELLITUS
  13. ELTROXIN [Concomitant]
     Indication: HYPOTHYROIDISM

REACTIONS (2)
  - DEATH [None]
  - DIARRHOEA [None]
